FAERS Safety Report 19861203 (Version 1)
Quarter: 2021Q3

REPORT INFORMATION
  Report Type: Spontaneous
  Country: US (occurrence: US)
  Receive Date: 20210920
  Receipt Date: 20210920
  Transmission Date: 20211014
  Serious: Yes (Other)
  Sender: FDA-Public Use
  Company Number: US-PFIZER INC-202101184028

PATIENT
  Age: 68 Year
  Sex: Male
  Weight: 82.99 kg

DRUGS (3)
  1. IBRANCE [Suspect]
     Active Substance: PALBOCICLIB
     Indication: BREAST CANCER FEMALE
     Dosage: 125 MG, CYCLIC (1 DAILY FOR 21 DAYS)
     Route: 048
     Dates: start: 20201204
  2. VITAMIN D2 [Concomitant]
     Active Substance: ERGOCALCIFEROL
     Dosage: 50 UG
  3. CALCIUM [Concomitant]
     Active Substance: CALCIUM
     Dosage: 600 MG

REACTIONS (6)
  - Fatigue [Unknown]
  - Neuropathy peripheral [Unknown]
  - Parosmia [Unknown]
  - Alopecia [Unknown]
  - Ageusia [Unknown]
  - Pancreatic disorder [Unknown]
